FAERS Safety Report 4303821-9 (Version None)
Quarter: 2004Q1

REPORT INFORMATION
  Report Type: 
  Country: None (occurrence: None)
  Receive Date: 20040224
  Receipt Date: 20040224
  Transmission Date: 20041129
  Serious: Yes (Life-Threatening, Hospitalization)
  Sender: FDA-Public Use
  Company Number: None

PATIENT
  Age: 82 Year
  Sex: Female
  Weight: 66.6788 kg

DRUGS (2)
  1. CEFOXITIN [Suspect]
     Indication: PROPHYLAXIS
     Dosage: IV X 1/ PRE-OP 2/12/02
     Route: 042
     Dates: start: 20020212
  2. CEFOXITIN [Suspect]
     Indication: SURGERY
     Dosage: IV X 1/ PRE-OP 2/12/02
     Route: 042
     Dates: start: 20020212

REACTIONS (5)
  - BLOOD CREATINE PHOSPHOKINASE MB ABNORMAL [None]
  - BLOOD PRESSURE DECREASED [None]
  - CARDIAC ARREST [None]
  - ERYTHEMA [None]
  - TROPONIN I INCREASED [None]
